FAERS Safety Report 20529229 (Version 1)
Quarter: 2022Q1

REPORT INFORMATION
  Report Type: Spontaneous
  Country: None (occurrence: PT)
  Receive Date: 20220228
  Receipt Date: 20220228
  Transmission Date: 20220423
  Serious: Yes (Hospitalization)
  Sender: FDA-Public Use
  Company Number: PT-ALSI-2022000038

PATIENT
  Age: 78 Year
  Sex: Female

DRUGS (1)
  1. OXYGEN [Suspect]
     Active Substance: OXYGEN
     Indication: Hypoxia
     Route: 055
     Dates: start: 20220205, end: 20220205

REACTIONS (1)
  - Inappropriate schedule of product administration [Not Recovered/Not Resolved]
